FAERS Safety Report 24562729 (Version 2)
Quarter: 2024Q4

REPORT INFORMATION
  Report Type: Spontaneous
  Country: BR (occurrence: BR)
  Receive Date: 20241029
  Receipt Date: 20241220
  Transmission Date: 20250115
  Serious: No
  Sender: NOVO NORDISK
  Company Number: BR-NOVOPROD-1304085

PATIENT
  Age: 84 Year
  Sex: Female

DRUGS (1)
  1. TRESIBA [Suspect]
     Active Substance: INSULIN DEGLUDEC
     Indication: Diabetes mellitus
     Dosage: UNK

REACTIONS (1)
  - Hypertension [Not Recovered/Not Resolved]
